FAERS Safety Report 5722694-0 (Version None)
Quarter: 2008Q2

REPORT INFORMATION
  Report Type: 
  Country: None (occurrence: None)
  Receive Date: 20080429
  Receipt Date: 20071002
  Transmission Date: 20081010
  Serious: No
  Sender: FDA-Public Use
  Company Number: US-ASTRAZENECA-2007UW22981

PATIENT
  Age: 86 Year
  Sex: Female
  Weight: 58.1 kg

DRUGS (6)
  1. NEXIUM [Suspect]
     Indication: GASTROOESOPHAGEAL REFLUX DISEASE
     Route: 048
     Dates: start: 20070701
  2. AVISTA [Concomitant]
  3. LEVOTHYROXINE SODIUM [Concomitant]
  4. HYDROCODONE BITARTRATE [Concomitant]
  5. RANITIDINE [Concomitant]
  6. VITAMINS [Concomitant]

REACTIONS (2)
  - DYSGEUSIA [None]
  - SALIVARY HYPERSECRETION [None]
